FAERS Safety Report 6253732-7 (Version None)
Quarter: 2009Q2

REPORT INFORMATION
  Report Type: 
  Country: None (occurrence: None)
  Receive Date: 20090630
  Receipt Date: 20090617
  Transmission Date: 20091009
  Serious: Yes (Other)
  Sender: FDA-Public Use
  Company Number: 236765K09USA

PATIENT
  Age: 55 Year
  Sex: Male
  Weight: 95 kg

DRUGS (3)
  1. REBIF [Suspect]
     Indication: MULTIPLE SCLEROSIS
     Dosage: 44 MCG, 3 IN 1 WEEKS, SUBCUTANEOUS
     Route: 058
     Dates: start: 20060606
  2. NEURONTIN [Concomitant]
  3. BACLOFEN [Concomitant]

REACTIONS (6)
  - ARTHRALGIA [None]
  - DIARRHOEA [None]
  - FAECAL INCONTINENCE [None]
  - INJECTION SITE ERYTHEMA [None]
  - LIGAMENT RUPTURE [None]
  - SLEEP APNOEA SYNDROME [None]
